FAERS Safety Report 10925079 (Version 2)
Quarter: 2015Q2

REPORT INFORMATION
  Report Type: Spontaneous
  Country: US (occurrence: US)
  Receive Date: 20150318
  Receipt Date: 20150524
  Transmission Date: 20150821
  Serious: No
  Sender: FDA-Public Use
  Company Number: US-JNJFOC-20120608347

PATIENT
  Age: 45 Year
  Sex: Female
  Weight: 54.43 kg

DRUGS (4)
  1. NIZORAL [Suspect]
     Active Substance: KETOCONAZOLE
     Indication: PRODUCT USED FOR UNKNOWN INDICATION
     Dosage: QUARTER SIZE ONCE A DAY
     Route: 061
  2. UNKNOWN MEDICATION [Concomitant]
     Active Substance: UNSPECIFIED INGREDIENT
     Dosage: 3 TIMES A WEEK
     Route: 065
  3. ROGAIN [Concomitant]
     Route: 065
  4. CALCIUM [Concomitant]
     Active Substance: CALCIUM
     Route: 065

REACTIONS (4)
  - Psoriasis [Unknown]
  - Inappropriate schedule of drug administration [Unknown]
  - Adverse reaction [Unknown]
  - Seborrhoeic dermatitis [Unknown]

NARRATIVE: CASE EVENT DATE: 20120611
